FAERS Safety Report 12161902 (Version 2)
Quarter: 2016Q1

REPORT INFORMATION
  Report Type: Spontaneous
  Country: IT (occurrence: IT)
  Receive Date: 20160309
  Receipt Date: 20160315
  Transmission Date: 20160526
  Serious: Yes (Death, Life-Threatening, Hospitalization)
  Sender: FDA-Public Use
  Company Number: IT-ACCORD-038473

PATIENT
  Age: 74 Year
  Sex: Female

DRUGS (2)
  1. ZARZIO SANDOZ [Concomitant]
     Dosage: STRENGTH: 30 MU - 60 MU/ML
     Dates: start: 20160128
  2. CAPECITABINE ACCORD [Suspect]
     Active Substance: CAPECITABINE
     Indication: PRODUCT USED FOR UNKNOWN INDICATION
     Dosage: STRENGTH: 500 MG
     Route: 048
     Dates: start: 20160114, end: 20160121

REACTIONS (6)
  - Toxicity to various agents [Unknown]
  - Hypersensitivity [Unknown]
  - Mucosal inflammation [Fatal]
  - Respiratory arrest [Fatal]
  - Bone marrow failure [Fatal]
  - Coma [Unknown]

NARRATIVE: CASE EVENT DATE: 20160126
